FAERS Safety Report 18207736 (Version 6)
Quarter: 2021Q1

REPORT INFORMATION
  Report Type: Spontaneous
  Country: US (occurrence: US)
  Receive Date: 20200828
  Receipt Date: 20210126
  Transmission Date: 20210419
  Serious: No
  Sender: FDA-Public Use
  Company Number: US-PFIZER INC-2020332354

PATIENT
  Age: 64 Year
  Sex: Female

DRUGS (3)
  1. IBRANCE [Suspect]
     Active Substance: PALBOCICLIB
     Dosage: UNK
     Dates: start: 20200812, end: 20201120
  2. LETROZOLE. [Suspect]
     Active Substance: LETROZOLE
     Dosage: UNK
  3. IBRANCE [Suspect]
     Active Substance: PALBOCICLIB
     Dosage: 125 MG
     Dates: start: 20200814, end: 2020

REACTIONS (9)
  - Rhinorrhoea [Unknown]
  - Diarrhoea [Unknown]
  - Arthralgia [Unknown]
  - Influenza like illness [Unknown]
  - Neoplasm progression [Unknown]
  - Attention deficit hyperactivity disorder [Unknown]
  - Back pain [Unknown]
  - Asthenia [Unknown]
  - Depressed mood [Recovering/Resolving]

NARRATIVE: CASE EVENT DATE: 2020
